FAERS Safety Report 6038433-2 (Version None)
Quarter: 2009Q1

REPORT INFORMATION
  Report Type: 
  Country: None (occurrence: None)
  Receive Date: 20090115
  Receipt Date: 20090107
  Transmission Date: 20090719
  Serious: Yes (Other)
  Sender: FDA-Public Use
  Company Number: JP-AVENTIS-200910056JP

PATIENT
  Age: 13 Year
  Weight: 40 kg

DRUGS (1)
  1. ALLEGRA                            /01314201/ [Suspect]
     Route: 048
     Dates: start: 20081227, end: 20090106

REACTIONS (1)
  - BLISTER [None]
